FAERS Safety Report 24993769 (Version 1)
Quarter: 2025Q1

REPORT INFORMATION
  Report Type: Spontaneous
  Country: US (occurrence: US)
  Receive Date: 20250221
  Receipt Date: 20250221
  Transmission Date: 20250409
  Serious: No
  Sender: ALEXION PHARMACEUTICALS
  Company Number: US-AstraZeneca-CH-00804076AP

PATIENT

DRUGS (1)
  1. SYMBICORT [Suspect]
     Active Substance: BUDESONIDE\FORMOTEROL FUMARATE DIHYDRATE
     Indication: Cough

REACTIONS (5)
  - Cough [Unknown]
  - Off label use [Unknown]
  - Complication associated with device [Unknown]
  - Incorrect dose administered by device [Unknown]
  - Product dose omission issue [Unknown]
